FAERS Safety Report 5602685-0 (Version None)
Quarter: 2008Q1

REPORT INFORMATION
  Report Type: 
  Country: None (occurrence: None)
  Receive Date: 20080125
  Receipt Date: 20080117
  Transmission Date: 20080703
  Serious: No
  Sender: FDA-Public Use
  Company Number: DE-ASTRAZENECA-2007PK02665

PATIENT
  Age: 7191 Day
  Sex: Female
  Weight: 69 kg

DRUGS (6)
  1. SEROQUEL [Suspect]
     Indication: PSYCHOTIC DISORDER
     Route: 048
     Dates: start: 20071010, end: 20071219
  2. SEROQUEL [Suspect]
     Route: 048
     Dates: start: 20071219
  3. FLUOXETINE HCL [Concomitant]
     Indication: DEPRESSION
     Route: 048
     Dates: start: 20060101
  4. ERGENYL CHRONO [Concomitant]
     Indication: IMPAIRED SELF-CARE
     Route: 048
     Dates: start: 20071001
  5. ERGENYL CHRONO [Concomitant]
     Indication: SCHIZOAFFECTIVE DISORDER
     Route: 048
     Dates: start: 20071001
  6. CONTRACEPTIVE [Concomitant]

REACTIONS (1)
  - LEUKOPENIA [None]
